FAERS Safety Report 25241825 (Version 1)
Quarter: 2025Q2

REPORT INFORMATION
  Report Type: Spontaneous
  Country: IT (occurrence: IT)
  Receive Date: 20250426
  Receipt Date: 20250426
  Transmission Date: 20250717
  Serious: Yes (Other)
  Sender: ABBVIE
  Company Number: IT-ABBVIE-6250446

PATIENT
  Age: 73 Year
  Sex: Male

DRUGS (6)
  1. SILODOSIN [Suspect]
     Active Substance: SILODOSIN
     Indication: Benign prostatic hyperplasia
     Dosage: FORM STRENGTH: 8 MG
     Route: 048
     Dates: start: 20181121, end: 201908
  2. VALSARTAN [Concomitant]
     Active Substance: VALSARTAN
     Indication: Hypertensive heart disease
     Route: 048
  3. Prodirexan [Concomitant]
     Indication: Benign prostatic hyperplasia
     Route: 048
  4. COUMADIN [Concomitant]
     Active Substance: WARFARIN SODIUM
     Indication: Atrial fibrillation
     Route: 048
  5. INDAPAMIDE [Concomitant]
     Active Substance: INDAPAMIDE
     Indication: Essential hypertension
     Route: 048
  6. SIMVASTATIN [Concomitant]
     Active Substance: SIMVASTATIN
     Indication: Dyslipidaemia
     Dosage: 1 CP/DAY IN THE EVENING
     Route: 048

REACTIONS (2)
  - Erectile dysfunction [Recovered/Resolved]
  - Retrograde ejaculation [Recovered/Resolved]

NARRATIVE: CASE EVENT DATE: 20190701
